FAERS Safety Report 7074294-0 (Version None)
Quarter: 2010Q4

REPORT INFORMATION
  Report Type: 
  Country: None (occurrence: None)
  Receive Date: 20101029
  Receipt Date: 20101025
  Transmission Date: 20110411
  Serious: Yes (Hospitalization)
  Sender: FDA-Public Use
  Company Number: FR-ROCHE-736205

PATIENT
  Sex: Female

DRUGS (6)
  1. ROCEPHIN [Suspect]
     Indication: TOOTH ABSCESS
     Dosage: DRUG: 1G/10ML POWDER AND SOLVENT FOR INJECTABLE SOLUTION.
     Route: 042
     Dates: start: 20100920, end: 20100928
  2. NUREFLEX [Suspect]
     Dosage: COATED TABLET
     Route: 048
     Dates: start: 20100916, end: 20100919
  3. METRONIDAZOLE/SPIRAMYCIN [Suspect]
     Indication: TOOTH ABSCESS
     Route: 048
     Dates: start: 20100916, end: 20100919
  4. FEXOFENADINE HCL [Suspect]
     Route: 048
     Dates: start: 20100919, end: 20100920
  5. PARACETAMOL [Concomitant]
  6. GENTAMICIN [Concomitant]

REACTIONS (5)
  - ARTHRALGIA [None]
  - EOSINOPHILIA [None]
  - MALAISE [None]
  - PYREXIA [None]
  - RASH [None]
